FAERS Safety Report 10092101 (Version 1)
Quarter: 2014Q2

REPORT INFORMATION
  Report Type: Spontaneous
  Country: GB (occurrence: GB)
  Receive Date: 20140421
  Receipt Date: 20140421
  Transmission Date: 20141212
  Serious: Yes (Other)
  Sender: FDA-Public Use
  Company Number: GB-MYLANLABS-2014S1008256

PATIENT
  Age: 56 Year
  Sex: Female

DRUGS (9)
  1. AZATHIOPRINE [Suspect]
     Indication: STEROID THERAPY
     Route: 065
  2. AZATHIOPRINE [Suspect]
     Indication: IMMUNOSUPPRESSION
     Route: 065
  3. HYDROCORTISONE [Suspect]
     Indication: DERMATITIS ATOPIC
     Route: 061
  4. PREDNISOLONE [Suspect]
     Indication: ECZEMA
  5. PREDNISOLONE [Suspect]
     Indication: ASTHMA
  6. PREDNISOLONE [Suspect]
     Indication: ECZEMA
  7. PREDNISOLONE [Suspect]
     Indication: ASTHMA
  8. BECLOMETHASONE DIPROPIONATE [Concomitant]
     Indication: ASTHMA
  9. BETAMETHASONE VALERATE [Concomitant]
     Indication: PRODUCT USED FOR UNKNOWN INDICATION
     Route: 061

REACTIONS (1)
  - Cushing^s syndrome [Unknown]
